FAERS Safety Report 15732703 (Version 1)
Quarter: 2018Q4

REPORT INFORMATION
  Report Type: Spontaneous
  Country: US (occurrence: US)
  Receive Date: 20181217
  Receipt Date: 20181217
  Transmission Date: 20190205
  Serious: No
  Sender: FDA-Public Use
  Company Number: US-BAYER-2018-226957

PATIENT

DRUGS (2)
  1. OXICODONE ACCORD [Concomitant]
     Active Substance: OXYCODONE
     Dosage: UNK
  2. ALEVE [Suspect]
     Active Substance: NAPROXEN SODIUM
     Dosage: UNK
     Route: 065

REACTIONS (4)
  - Product use issue [Unknown]
  - Hypersensitivity [Unknown]
  - Peripheral swelling [Unknown]
  - Limb discomfort [Unknown]
